FAERS Safety Report 8223031-2 (Version None)
Quarter: 2012Q1

REPORT INFORMATION
  Report Type: 
  Country: None (occurrence: None)
  Receive Date: 20120321
  Receipt Date: 20120306
  Transmission Date: 20120608
  Serious: Yes (Death, Hospitalization)
  Sender: FDA-Public Use
  Company Number: US-ASTRAZENECA-2012SE17567

PATIENT
  Age: 41 Year
  Sex: Male

DRUGS (20)
  1. ANTI-THYMOCYTE GLOBULIN NOS [Concomitant]
  2. IMMUNOGLOBULINS [Concomitant]
     Dosage: 500 MG/KG EVERY 48 HOURS
  3. CIDOFOVIR [Concomitant]
  4. FOSCARNET [Suspect]
     Route: 042
  5. GANCICLOVIR [Concomitant]
     Route: 042
  6. CYCLOSPORINE [Concomitant]
  7. PREDNISONE [Concomitant]
  8. VALGANCICLOVIR [Concomitant]
  9. FOSCARNET [Suspect]
     Indication: CYTOMEGALOVIRUS VIRAEMIA
     Route: 042
  10. FOSCARNET [Suspect]
     Indication: ENCEPHALITIS CYTOMEGALOVIRUS
     Route: 042
  11. FOSCARNET [Suspect]
     Route: 042
  12. FOSCARNET [Suspect]
     Route: 042
  13. FOSCARNET [Suspect]
     Route: 042
  14. FLUDARABINE PHOSPHATE [Concomitant]
  15. GANCICLOVIR [Concomitant]
     Route: 042
  16. FOSCARNET [Suspect]
     Route: 042
  17. MYCOPHENOLATE MOFETIL [Concomitant]
  18. PREDNISONE [Concomitant]
  19. FOSCARNET [Suspect]
     Route: 042
  20. CYCLOPHOSPHAMIDE [Concomitant]

REACTIONS (7)
  - RENAL FAILURE [None]
  - NEUROLOGICAL DECOMPENSATION [None]
  - DISORIENTATION [None]
  - NEPHROPATHY TOXIC [None]
  - DEATH [None]
  - MEMORY IMPAIRMENT [None]
  - ENCEPHALITIS [None]
